FAERS Safety Report 6194117-1 (Version None)
Quarter: 2009Q2

REPORT INFORMATION
  Report Type: 
  Country: None (occurrence: None)
  Receive Date: 20090518
  Receipt Date: 20090507
  Transmission Date: 20091009
  Serious: Yes (Other)
  Sender: FDA-Public Use
  Company Number: PHHY2009ZA17481

PATIENT
  Age: 9 Year
  Sex: Male

DRUGS (2)
  1. RITALIN [Suspect]
     Dosage: 10 MG, BID
  2. RITALIN LA [Suspect]

REACTIONS (1)
  - NEURON-SPECIFIC ENOLASE INCREASED [None]
